FAERS Safety Report 23870336 (Version 1)
Quarter: 2024Q2

REPORT INFORMATION
  Report Type: Spontaneous
  Country: US (occurrence: US)
  Receive Date: 20240517
  Receipt Date: 20240517
  Transmission Date: 20240716
  Serious: No
  Sender: FDA-Public Use
  Company Number: US-009507513-2405USA000752

PATIENT
  Age: 69 Year
  Sex: Female

DRUGS (2)
  1. INVANZ [Suspect]
     Active Substance: ERTAPENEM SODIUM
     Indication: Arthritis bacterial
     Dosage: UNK
  2. INVANZ [Suspect]
     Active Substance: ERTAPENEM SODIUM
     Indication: Escherichia infection

REACTIONS (1)
  - Off label use [Unknown]
